FAERS Safety Report 13936715 (Version 2)
Quarter: 2017Q3

REPORT INFORMATION
  Report Type: Other
  Country: US (occurrence: PR)
  Receive Date: 20170905
  Receipt Date: 20170908
  Transmission Date: 20171127
  Serious: Yes (Other)
  Sender: FDA-Public Use
  Company Number: US-UNITED THERAPEUTICS-UNT-2017-012658

PATIENT
  Age: 75 Year
  Sex: Female
  Weight: 73.47 kg

DRUGS (3)
  1. SILDENAFIL. [Concomitant]
     Active Substance: SILDENAFIL
     Indication: PULMONARY ARTERIAL HYPERTENSION
  2. REMODULIN [Suspect]
     Active Substance: TREPROSTINIL
     Indication: PULMONARY HYPERTENSION
     Dosage: UNK
     Route: 041
     Dates: start: 20090311
  3. REMODULIN [Suspect]
     Active Substance: TREPROSTINIL
     Indication: PULMONARY ARTERIAL HYPERTENSION
     Dosage: 0.032 ?G/KG, CONTINUING
     Route: 041
     Dates: start: 20090101

REACTIONS (10)
  - Tachycardia [Unknown]
  - Vomiting [Recovered/Resolved]
  - Malaise [Unknown]
  - Diarrhoea [Recovered/Resolved]
  - Pain in jaw [Unknown]
  - Headache [Recovered/Resolved]
  - Sinus congestion [Unknown]
  - Flushing [Unknown]
  - Reaction to excipient [Unknown]
  - Product use issue [Unknown]

NARRATIVE: CASE EVENT DATE: 201708
